FAERS Safety Report 8794818 (Version 1)
Quarter: 2012Q4

REPORT INFORMATION
  Report Type: 
  Country: AU (occurrence: AU)
  Receive Date: 20120917
  Receipt Date: 20120917
  Transmission Date: 20130627
  Serious: Yes (Death)
  Sender: FDA-Public Use
  Company Number: AU-BAXTER-2012BAX017152

PATIENT
  Age: 84 Year
  Sex: Male

DRUGS (3)
  1. DIANEAL LOW CALCIUM WITH 1.5 PERCENT W/V GLUCOSE PERITONEAL DIALYSIS S [Suspect]
     Indication: PERITONEAL DIALYSIS
     Route: 033
  2. DIANEAL LOW CALCIUM WITH 2.5 PERCENT W/V GLUCOSE PERITONEAL DIALYSIS S [Suspect]
     Indication: PERITONEAL DIALYSIS
     Route: 033
  3. EXTRANEAL 7.5% W_V ICODEXTRIN DIALYSIS SOLUTION TWIN BAG WITH DRAINAGE [Suspect]
     Indication: PERITONEAL DIALYSIS
     Route: 033

REACTIONS (1)
  - Death [Fatal]
